FAERS Safety Report 9745281 (Version 2)
Quarter: 2013Q4

REPORT INFORMATION
  Report Type: Spontaneous
  Country: GB (occurrence: GB)
  Receive Date: 20131211
  Receipt Date: 20131211
  Transmission Date: 20140711
  Serious: Yes (Hospitalization)
  Sender: FDA-Public Use
  Company Number: GB-JNJFOC-20130500078

PATIENT
  Age: 28 Year
  Sex: Male

DRUGS (1)
  1. RISPERDAL ORAL [Suspect]
     Indication: SCHIZOPHRENIA, PARANOID TYPE
     Dosage: 50X4MG
     Route: 048
     Dates: start: 201303

REACTIONS (2)
  - Intentional overdose [Recovering/Resolving]
  - Depressed mood [Recovering/Resolving]
